FAERS Safety Report 7920203-9 (Version None)
Quarter: 2011Q4

REPORT INFORMATION
  Report Type: 
  Country: None (occurrence: None)
  Receive Date: 20111115
  Receipt Date: 20111104
  Transmission Date: 20120403
  Serious: Yes (Hospitalization, Other)
  Sender: FDA-Public Use
  Company Number: TPA2011A06921

PATIENT
  Age: 60 Year
  Sex: Female
  Weight: 81.1939 kg

DRUGS (1)
  1. ACTOS [Suspect]
     Indication: TYPE 2 DIABETES MELLITUS
     Dosage: 30 MG, 1 IN 1 D
     Dates: start: 20000101, end: 20020101

REACTIONS (1)
  - BLADDER TRANSITIONAL CELL CARCINOMA [None]
